FAERS Safety Report 8031495-2 (Version None)
Quarter: 2011Q4

REPORT INFORMATION
  Report Type: 
  Country: None (occurrence: None)
  Receive Date: 20111201
  Receipt Date: 20101210
  Transmission Date: 20120403
  Serious: Yes (Hospitalization, Other)
  Sender: FDA-Public Use
  Company Number: 259636USA

PATIENT
  Sex: Female

DRUGS (5)
  1. MEDROXYPROGESTERONE [Suspect]
  2. ESTRADIOL [Suspect]
  3. ESTRADERM [Suspect]
  4. MEDROXYPROGESTERONE ACETATE [Suspect]
  5. ESTRADERM [Suspect]

REACTIONS (1)
  - BREAST CANCER [None]
